FAERS Safety Report 19581831 (Version 1)
Quarter: 2021Q3

REPORT INFORMATION
  Report Type: Report from Study
  Country: CN (occurrence: CN)
  Receive Date: 20210719
  Receipt Date: 20210719
  Transmission Date: 20211014
  Serious: Yes (Hospitalization)
  Sender: FDA-Public Use
  Company Number: CN-ASTRAZENECA-2021A099652

PATIENT
  Age: 17872 Day
  Sex: Male

DRUGS (27)
  1. OSIMERTINIB. [Suspect]
     Active Substance: OSIMERTINIB
     Indication: NON-SMALL CELL LUNG CANCER
     Route: 048
     Dates: start: 20210119, end: 20210203
  2. OSIMERTINIB. [Suspect]
     Active Substance: OSIMERTINIB
     Indication: NON-SMALL CELL LUNG CANCER
     Route: 048
     Dates: start: 20210409, end: 20210429
  3. CARBOPLATIN. [Suspect]
     Active Substance: CARBOPLATIN
     Indication: NON-SMALL CELL LUNG CANCER
     Dosage: 5 AUC EVERY THREE WEEKS
     Route: 042
     Dates: start: 20210119, end: 20210119
  4. PEMETREXED. [Suspect]
     Active Substance: PEMETREXED
     Indication: NON-SMALL CELL LUNG CANCER
     Route: 042
     Dates: start: 20210119, end: 20210119
  5. NUTRITIONAL ENTERAL NUTRITION PREPARATIONS [Concomitant]
     Indication: NUTRITIONAL SUPPLEMENTATION
     Dosage: 1.00 BAG EVERY DAY
     Route: 048
     Dates: start: 20210209, end: 20210218
  6. CARBOPLATIN. [Suspect]
     Active Substance: CARBOPLATIN
     Indication: NON-SMALL CELL LUNG CANCER
     Dosage: 5 AUC EVERY THREE WEEKS
     Route: 042
     Dates: start: 20201224, end: 20201224
  7. CARBOPLATIN. [Suspect]
     Active Substance: CARBOPLATIN
     Indication: NON-SMALL CELL LUNG CANCER
     Dosage: 5 AUC EVERY THREE WEEKS
     Route: 042
     Dates: start: 20210209, end: 20210209
  8. CARBOPLATIN. [Suspect]
     Active Substance: CARBOPLATIN
     Indication: NON-SMALL CELL LUNG CANCER
     Dosage: 5 AUC EVERY THREE WEEKS
     Route: 042
     Dates: start: 20210304, end: 20210304
  9. PEMETREXED. [Suspect]
     Active Substance: PEMETREXED
     Indication: NON-SMALL CELL LUNG CANCER
     Route: 042
     Dates: start: 20210304, end: 20210304
  10. PEMETREXED. [Suspect]
     Active Substance: PEMETREXED
     Indication: NON-SMALL CELL LUNG CANCER
     Route: 042
     Dates: start: 20210506, end: 20210506
  11. PEMETREXED. [Suspect]
     Active Substance: PEMETREXED
     Indication: NON-SMALL CELL LUNG CANCER
     Route: 042
     Dates: start: 20210325, end: 20210325
  12. TRAMADOL HYDROCHLORIDE SUSTAIEND RELEASE TABLETS [Concomitant]
     Indication: CANCER PAIN
     Route: 048
     Dates: start: 20210217
  13. OSIMERTINIB. [Suspect]
     Active Substance: OSIMERTINIB
     Indication: NON-SMALL CELL LUNG CANCER
     Route: 048
     Dates: start: 20210319, end: 20210408
  14. PEMETREXED. [Suspect]
     Active Substance: PEMETREXED
     Indication: NON-SMALL CELL LUNG CANCER
     Route: 042
     Dates: start: 20201224, end: 20201224
  15. PEMETREXED. [Suspect]
     Active Substance: PEMETREXED
     Indication: NON-SMALL CELL LUNG CANCER
     Route: 042
     Dates: start: 20210415, end: 20210415
  16. PEMETREXED. [Suspect]
     Active Substance: PEMETREXED
     Indication: NON-SMALL CELL LUNG CANCER
     Route: 042
     Dates: start: 20210527, end: 20210527
  17. CAFFEIC ACID PIECE [Concomitant]
     Indication: PLATELET COUNT INCREASED
     Route: 048
     Dates: start: 20210127, end: 20210206
  18. OSIMERTINIB. [Suspect]
     Active Substance: OSIMERTINIB
     Indication: NON-SMALL CELL LUNG CANCER
     Route: 048
     Dates: start: 20201224, end: 20210106
  19. OSIMERTINIB. [Suspect]
     Active Substance: OSIMERTINIB
     Indication: NON-SMALL CELL LUNG CANCER
     Route: 048
     Dates: start: 20210204, end: 20210225
  20. OSIMERTINIB. [Suspect]
     Active Substance: OSIMERTINIB
     Indication: NON-SMALL CELL LUNG CANCER
     Route: 048
     Dates: start: 20210225, end: 20210318
  21. OSIMERTINIB. [Suspect]
     Active Substance: OSIMERTINIB
     Indication: NON-SMALL CELL LUNG CANCER
     Route: 048
     Dates: start: 20210430, end: 20210610
  22. CAFFEIC ACID PIECE [Concomitant]
     Indication: PLATELET COUNT INCREASED
     Route: 048
     Dates: start: 20210127, end: 20210206
  23. CAFFEIC ACID PIECE [Concomitant]
     Indication: PLATELET COUNT INCREASED
     Route: 048
     Dates: start: 20210225, end: 20210301
  24. OSIMERTINIB. [Suspect]
     Active Substance: OSIMERTINIB
     Indication: NON-SMALL CELL LUNG CANCER
     Route: 048
     Dates: start: 20210611
  25. PEMETREXED. [Suspect]
     Active Substance: PEMETREXED
     Indication: NON-SMALL CELL LUNG CANCER
     Route: 042
     Dates: start: 20210209, end: 20210209
  26. CAFFEIC ACID PIECE [Concomitant]
     Indication: PLATELET COUNT INCREASED
     Route: 048
     Dates: start: 20210225, end: 20210301
  27. PARACETAMOL/OXYCODONE [Concomitant]
     Active Substance: ACETAMINOPHEN\OXYCODONE HYDROCHLORIDE
     Indication: ANALGESIC THERAPY
     Route: 048
     Dates: start: 20210207, end: 20210228

REACTIONS (1)
  - Myelosuppression [Recovered/Resolved]

NARRATIVE: CASE EVENT DATE: 20210301
